FAERS Safety Report 5852729-6 (Version None)
Quarter: 2008Q3

REPORT INFORMATION
  Report Type: 
  Country: None (occurrence: None)
  Receive Date: 20080819
  Receipt Date: 20080811
  Transmission Date: 20090109
  Serious: Yes (Life-Threatening, Hospitalization)
  Sender: FDA-Public Use
  Company Number: 6044880

PATIENT
  Age: 81 Year
  Sex: Female

DRUGS (14)
  1. BISOPROLOL FUMARATE [Suspect]
     Indication: DRUG USE FOR UNKNOWN INDICATION
     Dosage: 2.5 MG, (2.5 MG, 1 D) ORAL
     Route: 048
     Dates: start: 20080223
  2. VFEND [Suspect]
     Indication: DRUG USE FOR UNKNOWN INDICATION
     Dosage: SEE IMAGE
     Route: 042
     Dates: start: 20080225, end: 20080226
  3. VFEND [Suspect]
     Indication: DRUG USE FOR UNKNOWN INDICATION
     Dosage: SEE IMAGE
     Route: 042
     Dates: start: 20080226, end: 20080228
  4. VFEND [Suspect]
     Indication: DRUG USE FOR UNKNOWN INDICATION
     Dosage: SEE IMAGE
     Route: 042
     Dates: start: 20080228, end: 20080229
  5. VFEND [Suspect]
     Indication: DRUG USE FOR UNKNOWN INDICATION
     Dosage: SEE IMAGE
     Route: 042
     Dates: start: 20080301
  6. ERYTHROMYCINE (SOLUTION FOR INJECTION) (ERYTHROMYCIN) [Suspect]
     Indication: DRUG USE FOR UNKNOWN INDICATION
     Dosage: SEE IMAGE
     Route: 042
     Dates: start: 20080221, end: 20080223
  7. ERYTHROMYCINE (SOLUTION FOR INJECTION) (ERYTHROMYCIN) [Suspect]
     Indication: DRUG USE FOR UNKNOWN INDICATION
     Dosage: SEE IMAGE
     Route: 042
     Dates: start: 20080229, end: 20080304
  8. ZOPHREN (SOLUTION FOR INJECTION) (ONDANSETRON HYDROCHLORIDE) [Suspect]
     Indication: DRUG USE FOR UNKNOWN INDICATION
     Dosage: 12 MG (4 MG, 3 IN 1 D) INTRAVENOUS (NOT OTHERWISE SPECIFIED)
     Route: 042
     Dates: start: 20080203
  9. AUGMENTIN (SOLUTION FOR INJECTION) (AMOXICILLIN SODIUM, CLAVULANATE, P [Concomitant]
  10. ATROVENT (PRESSURISED INHALATION) (IPRATROPIUM BROMIDE) [Concomitant]
  11. BRICANYL (PRESSURISED INHALATION (TERBUTALINE SULFATE) [Concomitant]
  12. ASPEGIC (POWDER FOR ORAL SOULTION) (ACETYLSALICYLIC ACID) [Concomitant]
  13. MORPHINE (SOLUTION FOR INJECTION) (MORPHINE HYDROCHLORIDE) [Concomitant]
  14. CALCIPARINE [Concomitant]

REACTIONS (11)
  - ACUTE RESPIRATORY DISTRESS SYNDROME [None]
  - BRADYCARDIA [None]
  - BRONCHOPULMONARY ASPERGILLOSIS [None]
  - CARDIAC ARREST [None]
  - CARDIAC FAILURE [None]
  - DRUG INTERACTION [None]
  - MULTI-ORGAN FAILURE [None]
  - NERVOUS SYSTEM DISORDER [None]
  - PULMONARY EMBOLISM [None]
  - RENAL FAILURE [None]
  - SEPTIC EMBOLUS [None]
